FAERS Safety Report 24430474 (Version 2)
Quarter: 2025Q3

REPORT INFORMATION
  Report Type: Spontaneous
  Country: US (occurrence: US)
  Receive Date: 20241013
  Receipt Date: 20250810
  Transmission Date: 20251021
  Serious: Yes (Hospitalization, Other)
  Sender: ALEXION PHARMACEUTICALS
  Company Number: US-AstraZeneca-CH-00713055A

PATIENT
  Age: 81 Year
  Sex: Female

DRUGS (1)
  1. IMFINZI [Suspect]
     Active Substance: DURVALUMAB
     Indication: Lung carcinoma cell type unspecified stage III
     Dosage: UNK, Q4W
     Route: 065

REACTIONS (11)
  - Pain in extremity [Unknown]
  - Hip arthroplasty [Unknown]
  - Arthralgia [Unknown]
  - Transient ischaemic attack [Unknown]
  - Heart disease congenital [Unknown]
  - Hip arthroplasty [Unknown]
  - Hypokinesia [Unknown]
  - Blepharitis [Unknown]
  - Pneumonitis [Unknown]
  - Alopecia [Unknown]
  - Lung neoplasm malignant [Unknown]

NARRATIVE: CASE EVENT DATE: 20230301
